FAERS Safety Report 12666569 (Version 3)
Quarter: 2016Q3

REPORT INFORMATION
  Report Type: Report from Study
  Country: CA (occurrence: CA)
  Receive Date: 20160819
  Receipt Date: 20160831
  Transmission Date: 20161109
  Serious: Yes (Other)
  Sender: FDA-Public Use
  Company Number: CA-AMGEN-CANSL2016107448

PATIENT
  Age: 46 Year
  Sex: Female

DRUGS (3)
  1. ENBREL [Suspect]
     Active Substance: ETANERCEPT
     Indication: PSORIATIC ARTHROPATHY
     Dosage: 50 MG, QWK
     Route: 065
     Dates: start: 20120830
  2. CIPROFLOXACIN. [Suspect]
     Active Substance: CIPROFLOXACIN
     Indication: URINARY TRACT INFECTION
     Dosage: UNK
     Route: 065
  3. ENBREL [Suspect]
     Active Substance: ETANERCEPT
     Indication: PSORIASIS

REACTIONS (11)
  - Urinary tract infection [Unknown]
  - Stress [Unknown]
  - Adverse reaction [Unknown]
  - Arthritis [Unknown]
  - Rash [Recovered/Resolved]
  - Nephrolithiasis [Unknown]
  - Colitis [Unknown]
  - Erythema [Recovered/Resolved]
  - Single functional kidney [Unknown]
  - Psoriasis [Unknown]
  - Papule [Unknown]

NARRATIVE: CASE EVENT DATE: 20160809
